FAERS Safety Report 23682379 (Version 1)
Quarter: 2024Q1

REPORT INFORMATION
  Report Type: Spontaneous
  Country: JP (occurrence: JP)
  Receive Date: 20240328
  Receipt Date: 20240328
  Transmission Date: 20240410
  Serious: Yes (Other)
  Sender: FDA-Public Use
  Company Number: JP-SERVIER-S24003256

PATIENT

DRUGS (12)
  1. ONCASPAR [Suspect]
     Active Substance: PEGASPARGASE
     Indication: Angiocentric lymphoma
     Dosage: 1500 U/M2
     Route: 042
     Dates: start: 20240214, end: 20240214
  2. ONCASPAR [Suspect]
     Active Substance: PEGASPARGASE
     Dosage: 1500 U/M2
     Route: 042
     Dates: start: 20240318, end: 20240318
  3. MEYLON [Concomitant]
     Active Substance: SODIUM BICARBONATE
     Indication: Product used for unknown indication
     Dosage: 120 ML
     Route: 042
     Dates: start: 20240206, end: 20240209
  4. GRANISETRON HYDROCHLORIDE [Concomitant]
     Active Substance: GRANISETRON HYDROCHLORIDE
     Indication: Product used for unknown indication
     Dosage: 3MG /100ML
     Route: 042
     Dates: start: 20240206, end: 20240209
  5. METHOTREXATE [Concomitant]
     Active Substance: METHOTREXATE
     Indication: Angiocentric lymphoma
     Dosage: 2000 MG/M2
     Route: 042
     Dates: start: 20240206, end: 20240206
  6. LEUCOVORIN [Concomitant]
     Active Substance: LEUCOVORIN\LEUCOVORIN CALCIUM
     Indication: Angiocentric lymphoma
     Dosage: 25 MG, QID, DAY 2, 3, 4
     Route: 042
     Dates: start: 20240207, end: 20240209
  7. DEXAMETHASONE SODIUM PHOSPHATE [Concomitant]
     Active Substance: DEXAMETHASONE PHOSPHATE\DEXAMETHASONE SODIUM PHOSPHATE
     Indication: Angiocentric lymphoma
     Dosage: 40 MG/BODY, DAY 2, 3, 4
     Route: 042
     Dates: start: 20240207, end: 20240209
  8. ETOPOSIDE [Concomitant]
     Active Substance: ETOPOSIDE
     Indication: Angiocentric lymphoma
     Dosage: 100 MG/M*2, DAY 2, 3, 4
     Route: 042
     Dates: start: 20240207, end: 20240209
  9. IFOSFAMIDE [Concomitant]
     Active Substance: IFOSFAMIDE
     Indication: Angiocentric lymphoma
     Dosage: 1500 MG/M*2, DAY 2, 3, 4
     Route: 042
     Dates: start: 20240207, end: 20240209
  10. MESNA [Concomitant]
     Active Substance: MESNA
     Indication: Product used for unknown indication
     Dosage: 300 MG/M*2, DAY 2, 3, 4
     Route: 042
     Dates: start: 20240207, end: 20240209
  11. FILGRASTIM [Concomitant]
     Active Substance: FILGRASTIM
     Indication: Product used for unknown indication
     Dosage: UNK
     Route: 058
     Dates: start: 20240211, end: 202402
  12. DIAMOX SEQUELS [Concomitant]
     Active Substance: ACETAZOLAMIDE
     Indication: Product used for unknown indication
     Dosage: 250 MG/M2
     Route: 048
     Dates: start: 20240206, end: 20240211

REACTIONS (2)
  - Anaphylactic shock [Recovered/Resolved]
  - Off label use [Recovered/Resolved]

NARRATIVE: CASE EVENT DATE: 20240213
